FAERS Safety Report 15440099 (Version 1)
Quarter: 2018Q3

REPORT INFORMATION
  Report Type: Spontaneous
  Country: US (occurrence: US)
  Receive Date: 20180928
  Receipt Date: 20180928
  Transmission Date: 20181010
  Serious: No
  Sender: FDA-Public Use
  Company Number: US-JNJFOC-20180910393

PATIENT
  Age: 4 Decade
  Sex: Male
  Weight: 91.63 kg

DRUGS (2)
  1. INVEGA SUSTENNA [Suspect]
     Active Substance: PALIPERIDONE PALMITATE
     Indication: SCHIZOAFFECTIVE DISORDER
     Dosage: FIRST DOSE; MID OF JULY 2018
     Route: 030
     Dates: start: 201807
  2. INVEGA SUSTENNA [Suspect]
     Active Substance: PALIPERIDONE PALMITATE
     Indication: SCHIZOAFFECTIVE DISORDER
     Dosage: SECOND DOSE
     Route: 030
     Dates: start: 20180814

REACTIONS (4)
  - Treatment noncompliance [Unknown]
  - Injection site pain [Unknown]
  - Diarrhoea [Unknown]
  - Headache [Unknown]

NARRATIVE: CASE EVENT DATE: 20180814
